FAERS Safety Report 8134326-5 (Version None)
Quarter: 2012Q1

REPORT INFORMATION
  Report Type: 
  Country: None (occurrence: None)
  Receive Date: 20120209
  Receipt Date: 20120131
  Transmission Date: 20120608
  Serious: Yes (Hospitalization)
  Sender: FDA-Public Use
  Company Number: IMP_05733_2012

PATIENT
  Age: 74 Year
  Sex: Male

DRUGS (1)
  1. METFORMIN HCL [Suspect]
     Indication: PRODUCT USED FOR UNKNOWN INDICATION
     Dosage: (850 MG TID)

REACTIONS (12)
  - GASTRITIS [None]
  - CONTINUOUS HAEMODIAFILTRATION [None]
  - ANAEMIA [None]
  - DYSPNOEA [None]
  - CARDIAC FAILURE CONGESTIVE [None]
  - LETHARGY [None]
  - PNEUMONIA ASPIRATION [None]
  - LACTIC ACIDOSIS [None]
  - EJECTION FRACTION DECREASED [None]
  - TACHYPNOEA [None]
  - RENAL IMPAIRMENT [None]
  - HYPOTENSION [None]
